FAERS Safety Report 9355978 (Version 2)
Quarter: 2013Q3

REPORT INFORMATION
  Report Type: Spontaneous
  Country: BR (occurrence: BR)
  Receive Date: 20130619
  Receipt Date: 20130715
  Transmission Date: 20140515
  Serious: Yes (Hospitalization, Other)
  Sender: FDA-Public Use
  Company Number: PHHY2013BR060352

PATIENT
  Sex: Male

DRUGS (12)
  1. APRESOLIN [Suspect]
     Indication: CARDIOMYOPATHY
     Dosage: 3 DF(50MG), TID(THREE TIMES PER DAY)
     Dates: end: 20130608
  2. APRESOLIN [Suspect]
     Indication: RENAL IMPAIRMENT
     Dosage: 2 DF(50 MG), 1AND 1/2 TABLET IN THE MORINIG AND HALF TABLET IN THE AFTERNOON
     Route: 048
  3. CAPTOPRIL [Suspect]
     Dosage: UNK UKN, UNK
  4. BISOPROLOL FUMARATE [Concomitant]
     Indication: CARDIAC DISORDER
     Dosage: 1 DF, Q6H (SOMETIMES USED 2 TABLETS ACCORDING TO HIS BLOOD TESTS)
     Route: 048
  5. BISOPROLOL FUMARATE [Concomitant]
     Indication: HYPERTENSION
  6. FUROSEMIDE [Concomitant]
     Indication: DIURETIC THERAPY
     Dosage: 3 DF, DAILY (2 TABLET IN THE MORNING AND 1 TABLET IN THE AFTERNOON)
     Route: 048
  7. SPIRONOLACTONE [Concomitant]
     Indication: DIURETIC THERAPY
     Dosage: 1 DF, IN THE MORNING
     Route: 048
  8. HYDROCHLOROTHIAZIDE [Concomitant]
     Indication: DIURETIC THERAPY
     Dosage: 2 DF, DAILY
     Route: 048
  9. WARFARIN [Concomitant]
     Indication: ANTICOAGULANT THERAPY
     Dosage: 2 DF OR 1 DF, ALTERNATING DAYS (ONE DAY HE TTOK 1 DF AND THE OTHER DAY HE TOOK 2 DF)
     Route: 048
  10. ISOSORBIDE [Concomitant]
     Indication: CARDIAC DISORDER
     Dosage: 3 DF, DAILY
     Route: 048
  11. ISOSORBIDE [Concomitant]
     Indication: HYPERTENSION
  12. DIURETICS [Concomitant]

REACTIONS (5)
  - Fall [Recovering/Resolving]
  - Limb injury [Recovering/Resolving]
  - Renal failure [Recovered/Resolved]
  - Fluid retention [Not Recovered/Not Resolved]
  - Wrong technique in drug usage process [Unknown]
